FAERS Safety Report 9922430 (Version 1)
Quarter: 2014Q1

REPORT INFORMATION
  Report Type: Spontaneous
  Country: US (occurrence: US)
  Receive Date: 20140225
  Receipt Date: 20140225
  Transmission Date: 20141002
  Serious: Yes (Other)
  Sender: FDA-Public Use
  Company Number: CHPA2014US002926

PATIENT
  Age: 71 Year
  Sex: Male

DRUGS (3)
  1. EXCEDRIN ES BACK + BODY [Suspect]
     Indication: BACK PAIN
     Dosage: 2 DF, PRN
     Route: 048
     Dates: start: 201007
  2. EXCEDRIN ES BACK + BODY [Suspect]
     Indication: NEURALGIA
     Dosage: 2 DF, PRN
     Route: 048
     Dates: end: 201307
  3. EXCEDRIN ES BACK + BODY [Suspect]
     Indication: OFF LABEL USE

REACTIONS (3)
  - Diabetes mellitus [Recovering/Resolving]
  - Blood pressure increased [Not Recovered/Not Resolved]
  - Therapeutic response unexpected [Unknown]
